FAERS Safety Report 13667488 (Version 1)
Quarter: 2017Q2

REPORT INFORMATION
  Report Type: Report from Study
  Country: MX (occurrence: MX)
  Receive Date: 20170620
  Receipt Date: 20170620
  Transmission Date: 20170830
  Serious: Yes (Other)
  Sender: FDA-Public Use
  Company Number: MX-ROCHE-578588

PATIENT

DRUGS (1)
  1. RITUXIMAB [Suspect]
     Active Substance: RITUXIMAB
     Indication: SYSTEMIC LUPUS ERYTHEMATOSUS
     Dosage: 0.5 - 1.0 G, GIVEN ON DAYS 1 AND 15
     Route: 042

REACTIONS (2)
  - Therapeutic response decreased [Unknown]
  - Renal failure [Unknown]
